FAERS Safety Report 14891173 (Version 3)
Quarter: 2018Q3

REPORT INFORMATION
  Report Type: Spontaneous
  Country: JP (occurrence: JP)
  Receive Date: 20180514
  Receipt Date: 20180723
  Transmission Date: 20181010
  Serious: Yes (Death, Hospitalization, Other)
  Sender: FDA-Public Use
  Company Number: JP-009507513-1805JPN000515J

PATIENT
  Age: 71 Year
  Sex: Female
  Weight: 44 kg

DRUGS (6)
  1. CARBOCISTEINE [Concomitant]
     Active Substance: CARBOCYSTEINE
     Dosage: UNK
     Route: 048
  2. KEYTRUDA [Suspect]
     Active Substance: PEMBROLIZUMAB
     Indication: LUNG SQUAMOUS CELL CARCINOMA STAGE IV
     Dosage: 200 MG, Q3W
     Route: 041
     Dates: start: 20180424, end: 20180424
  3. RESPLEN [Concomitant]
     Active Substance: EPRAZINONE
     Indication: COUGH
     Dosage: 20 MG, TID
     Route: 048
     Dates: start: 20180406
  4. PREDONINE [Concomitant]
     Active Substance: PREDNISOLONE
     Indication: DRUG ERUPTION
     Dosage: 20 MG, UNK
     Route: 048
     Dates: start: 20180403
  5. XYZAL [Concomitant]
     Active Substance: LEVOCETIRIZINE DIHYDROCHLORIDE
     Indication: DRUG ERUPTION
     Dosage: 5 MG, QD
     Route: 048
     Dates: start: 20180410
  6. PREDONINE [Concomitant]
     Active Substance: PREDNISOLONE
     Dosage: 5 MG, UNK
     Route: 048
     Dates: start: 20180424

REACTIONS (6)
  - Skin disorder [Recovered/Resolved]
  - Altered state of consciousness [Fatal]
  - Lung disorder [Fatal]
  - Dyspnoea [Recovering/Resolving]
  - Muscular weakness [Unknown]
  - Respiratory failure [Fatal]

NARRATIVE: CASE EVENT DATE: 201804
